FAERS Safety Report 12746255 (Version 1)
Quarter: 2016Q3

REPORT INFORMATION
  Report Type: Spontaneous
  Country: US (occurrence: US)
  Receive Date: 20160915
  Receipt Date: 20160915
  Transmission Date: 20161109
  Serious: Yes (Hospitalization)
  Sender: FDA-Public Use
  Company Number: US-SA-2016SA167037

PATIENT
  Age: 64 Year
  Sex: Female

DRUGS (3)
  1. LANTUS SOLOSTAR [Suspect]
     Active Substance: INSULIN GLARGINE
     Indication: TYPE 2 DIABETES MELLITUS
     Dosage: DOSE: 55 U 3-4 TIMES DOSE:55 UNIT(S)
     Route: 065
     Dates: start: 1993
  2. HUMALOG [Concomitant]
     Active Substance: INSULIN LISPRO
  3. SOLOSTAR [Concomitant]
     Active Substance: DEVICE
     Indication: TYPE 2 DIABETES MELLITUS
     Dosage: DOSE: 55 U 3-4 TIMES
     Dates: start: 1993

REACTIONS (3)
  - Product use issue [Unknown]
  - Hospitalisation [Unknown]
  - Pyrexia [Unknown]

NARRATIVE: CASE EVENT DATE: 1993
